FAERS Safety Report 17671305 (Version 1)
Quarter: 2020Q2

REPORT INFORMATION
  Report Type: Report from Study
  Country: IT (occurrence: IT)
  Receive Date: 20200415
  Receipt Date: 20200415
  Transmission Date: 20200713
  Serious: Yes (Other)
  Sender: FDA-Public Use
  Company Number: IT-MYLANLABS-2020M1037957

PATIENT
  Age: 55 Year
  Sex: Female

DRUGS (2)
  1. ENDOPROST                          /00893402/ [Concomitant]
     Dosage: UNK
     Route: 042
  2. BRUFEN 600 MG COMPRESSE RIVESTITE [Suspect]
     Active Substance: IBUPROFEN
     Indication: PERICARDITIS
     Dosage: 1 DOSAGE FORM, QD
     Route: 048
     Dates: start: 20200116, end: 20200206

REACTIONS (3)
  - Conjunctival haemorrhage [Unknown]
  - Vision blurred [Unknown]
  - Eye pain [Unknown]

NARRATIVE: CASE EVENT DATE: 20200206
